FAERS Safety Report 18013269 (Version 2)
Quarter: 2020Q3

REPORT INFORMATION
  Report Type: Spontaneous
  Country: US (occurrence: US)
  Receive Date: 20200713
  Receipt Date: 20200714
  Transmission Date: 20201103
  Serious: No
  Sender: FDA-Public Use
  Company Number: US-PFIZER INC-2020266186

PATIENT
  Age: 82 Year
  Sex: Female
  Weight: 54.43 kg

DRUGS (1)
  1. AROMASIN [Suspect]
     Active Substance: EXEMESTANE
     Indication: BREAST CANCER FEMALE
     Dosage: 25 MG, DAILY
     Route: 048

REACTIONS (1)
  - Alopecia [Recovering/Resolving]
